FAERS Safety Report 20036574 (Version 1)
Quarter: 2021Q4

REPORT INFORMATION
  Report Type: Other
  Country: JP (occurrence: JP)
  Receive Date: 20211105
  Receipt Date: 20211105
  Transmission Date: 20220304
  Serious: Yes (Life-Threatening, Other)
  Sender: FDA-Public Use
  Company Number: JP-CHUGAI-A2020019758ROCHE

PATIENT
  Age: 78 Year
  Sex: Female

DRUGS (17)
  1. ATEZOLIZUMAB [Suspect]
     Active Substance: ATEZOLIZUMAB
     Indication: Non-small cell lung cancer
     Dosage: DOSE INTERVAL UNCERTAINTY, 2 COURSES
     Route: 041
     Dates: start: 20200207, end: 20200306
  2. BEVACIZUMAB [Suspect]
     Active Substance: BEVACIZUMAB
     Indication: Non-small cell lung cancer
     Dosage: DOSE INTERVAL UNCERTAINTY, 2 COURSES
     Route: 041
     Dates: start: 20200207, end: 20200306
  3. CARBOPLATIN [Concomitant]
     Active Substance: CARBOPLATIN
     Indication: Non-small cell lung cancer
     Dosage: DOSE INTERVAL UNCERTAINTY, 2COURSES
     Route: 041
     Dates: start: 20200207, end: 20200207
  4. CARBOPLATIN [Concomitant]
     Active Substance: CARBOPLATIN
     Dosage: DOSE INTERVAL UNCERTAINTY, 2COURSES
     Route: 041
     Dates: start: 20200306, end: 20200306
  5. PACLITAXEL [Concomitant]
     Active Substance: PACLITAXEL
     Indication: Non-small cell lung cancer
     Dosage: DOSE INTERVAL UNCERTAINTY, 2COURSES
     Route: 041
     Dates: start: 20200207, end: 20200207
  6. PACLITAXEL [Concomitant]
     Active Substance: PACLITAXEL
     Dosage: DOSE INTERVAL UNCERTAINTY, 2COURSES
     Route: 041
     Dates: start: 20200306, end: 20200306
  7. PEMAFIBRATE [Concomitant]
     Active Substance: PEMAFIBRATE
     Indication: Hyperlipidaemia
     Dosage: DOSE INTERVAL UNCERTAINTY
     Route: 048
  8. LOXOPROFEN [Concomitant]
     Active Substance: LOXOPROFEN
     Indication: Pain in extremity
     Dosage: DOSE INTERVAL UNCERTAINTY
     Route: 048
  9. REBAMIPIDE [Concomitant]
     Active Substance: REBAMIPIDE
     Indication: Abdominal pain upper
     Dosage: DOSE INTERVAL UNCERTAINTY
     Route: 065
  10. TELTHIA [Concomitant]
     Indication: Hypertension
     Dosage: DOSE INTERVAL UNCERTAINTY
     Route: 048
  11. AZELNIDIPINE [Concomitant]
     Active Substance: AZELNIDIPINE
     Indication: Hypertension
     Dosage: DOSE INTERVAL UNCERTAINTY
     Route: 048
  12. FEBUXOSTAT [Concomitant]
     Active Substance: FEBUXOSTAT
     Indication: Hyperuricaemia
     Dosage: DOSE INTERVAL UNCERTAINTY
     Route: 048
  13. FAD (JAPAN) [Concomitant]
     Indication: Hypovitaminosis
     Dosage: DOSE INTERVAL UNCERTAINTY
     Route: 065
  14. FLUNITRAZEPAM [Concomitant]
     Active Substance: FLUNITRAZEPAM
     Indication: Insomnia
     Dosage: DOSE INTERVAL UNCERTAINTY
     Route: 065
  15. LEVOTHYROXINE [Concomitant]
     Active Substance: LEVOTHYROXINE
     Indication: Hypothyroidism
     Dosage: DOSE INTERVAL UNCERTAINTY
     Route: 048
     Dates: start: 20200226
  16. MIYA-BM [Concomitant]
     Active Substance: CLOSTRIDIUM BUTYRICUM SPORES STRAIN M-55
     Indication: Diarrhoea
     Dosage: DOSE INTERVAL UNCERTAINTY
     Route: 048
     Dates: start: 20200217
  17. SHAKUYAKUKANZOTO [Concomitant]
     Active Substance: HERBALS
     Indication: Muscle spasms
     Dosage: DOSE INTERVAL UNCERTAINTY
     Route: 048
     Dates: start: 20200213

REACTIONS (12)
  - Myocarditis [Recovered/Resolved]
  - Myasthenia gravis [Recovered/Resolved]
  - Pancytopenia [Recovered/Resolved]
  - Febrile neutropenia [Unknown]
  - Thyroid disorder [Unknown]
  - Diarrhoea [Unknown]
  - Muscle spasms [Unknown]
  - Rash [Unknown]
  - Skin exfoliation [Unknown]
  - Oedema [Unknown]
  - Epistaxis [Unknown]
  - Paronychia [Unknown]

NARRATIVE: CASE EVENT DATE: 20200215
